FAERS Safety Report 4369420-8 (Version None)
Quarter: 2004Q2

REPORT INFORMATION
  Report Type: 
  Country: None (occurrence: None)
  Receive Date: 20040527
  Receipt Date: 20040309
  Transmission Date: 20050107
  Serious: Yes (Other)
  Sender: FDA-Public Use
  Company Number: 9039997-2002-00016

PATIENT
  Age: 70 Year
  Sex: Female

DRUGS (1)
  1. LEVULAN KERASTICK FOR TOPICAL SOLN, 20% [Suspect]
     Indication: ACTINIC KERATOSIS
     Dosage: 20%, ONCE, TOPICAL
     Dates: start: 20020529, end: 20020530

REACTIONS (1)
  - CUTANEOUS LUPUS ERYTHEMATOSUS [None]
